FAERS Safety Report 10062525 (Version 1)
Quarter: 2014Q2

REPORT INFORMATION
  Report Type: Spontaneous
  Country: FR (occurrence: FR)
  Receive Date: 20140407
  Receipt Date: 20140407
  Transmission Date: 20141212
  Serious: Yes (Disabling)
  Sender: FDA-Public Use
  Company Number: FR-009507513-1404FRA001714

PATIENT
  Sex: Male

DRUGS (14)
  1. INEGY [Suspect]
     Indication: HYPERCHOLESTEROLAEMIA
     Dosage: UNK
     Route: 048
     Dates: start: 201309
  2. SEROQUEL [Interacting]
     Indication: DEPRESSION
     Dosage: 50 MG, QD
     Route: 048
     Dates: end: 201312
  3. SEROQUEL [Interacting]
     Indication: INSOMNIA
     Dosage: 100 MG, HS
     Route: 048
     Dates: start: 201312, end: 20140312
  4. METFORMIN [Concomitant]
     Indication: DIABETES MELLITUS
     Dosage: 2 DF, QD
     Route: 048
  5. DIAMICRON [Concomitant]
     Indication: DIABETES MELLITUS
     Dosage: 1 DF, UNK
     Route: 048
  6. PLAVIX [Concomitant]
     Dosage: UNK
     Route: 048
     Dates: start: 201309
  7. ONBREZ [Concomitant]
     Dosage: UNK
     Route: 045
     Dates: start: 2012
  8. PERMIXON [Concomitant]
     Dosage: UNK
     Route: 048
     Dates: start: 2012
  9. VESICARE [Concomitant]
     Route: 048
  10. LYRICA [Concomitant]
     Indication: PAIN IN EXTREMITY
     Dosage: 75 MG, QD
     Dates: start: 201309
  11. LYRICA [Concomitant]
     Dosage: 100 MG, QD
     Route: 048
  12. CYMBALTA [Concomitant]
     Route: 048
  13. NOCTAMIDE [Concomitant]
     Dosage: UNK
     Route: 048
  14. COAPROVEL [Concomitant]
     Route: 048

REACTIONS (5)
  - Drug interaction [Recovered/Resolved]
  - Pain in extremity [Recovered/Resolved]
  - Gait disturbance [Recovered/Resolved]
  - Lumbar spinal stenosis [Unknown]
  - Feeling drunk [Recovered/Resolved]
